FAERS Safety Report 7491017-1 (Version None)
Quarter: 2011Q2

REPORT INFORMATION
  Report Type: 
  Country: None (occurrence: None)
  Receive Date: 20110519
  Receipt Date: 20110506
  Transmission Date: 20111010
  Serious: Yes (Other)
  Sender: FDA-Public Use
  Company Number: GB-GENENTECH-314953

PATIENT

DRUGS (2)
  1. WARFARIN SODIUM [Concomitant]
     Indication: DEEP VEIN THROMBOSIS
  2. XOLAIR [Suspect]
     Indication: PRODUCT USED FOR UNKNOWN INDICATION
     Dosage: UNK
     Route: 058
     Dates: start: 20060101

REACTIONS (2)
  - DEEP VEIN THROMBOSIS [None]
  - FOOT FRACTURE [None]
